FAERS Safety Report 8974609 (Version 1)
Quarter: 2012Q4

REPORT INFORMATION
  Report Type: Report from Study
  Country: DE (occurrence: DE)
  Receive Date: 20121219
  Receipt Date: 20121219
  Transmission Date: 20130627
  Serious: Yes (Hospitalization)
  Sender: FDA-Public Use
  Company Number: DE-ELI_LILLY_AND_COMPANY-DE201212004520

PATIENT
  Age: 70 Year
  Sex: Female
  Weight: 65 kg

DRUGS (12)
  1. PEMETREXED [Suspect]
     Indication: NON-SMALL CELL LUNG CANCER
     Dosage: 500 mg/m2, 1 in 3 week
     Route: 042
     Dates: start: 20100217
  2. BEVACIZUMAB [Suspect]
     Indication: NON-SMALL CELL LUNG CANCER
     Dosage: 7.5 mg/kg, 1 in 3 weeks
     Route: 042
     Dates: start: 20100217
  3. CARBOPLATIN [Suspect]
     Indication: NON-SMALL CELL LUNG CANCER
     Dosage: 300 mg/m2, 1 in 3 week
     Route: 042
     Dates: start: 20100217
  4. RAMIPRIL [Concomitant]
     Dosage: 2.5 mg, UNK
     Dates: start: 200202
  5. LASIX [Concomitant]
     Dosage: 20 mg, UNK
     Dates: start: 200202
  6. VIANI [Concomitant]
     Dosage: 50 ug, UNK
     Dates: start: 200906
  7. ACTRAPID                           /00646001/ [Concomitant]
     Dosage: 100 IU, UNK
     Dates: start: 200906
  8. PROTAPHANE [Concomitant]
     Dosage: 100 IU, UNK
     Dates: start: 200906
  9. TRAMAL [Concomitant]
     Dosage: 15 UNK, UNK
     Dates: start: 20100330
  10. URSOFALK [Concomitant]
     Dosage: 250 mg, UNK
     Dates: start: 200809
  11. SPIRONOLACTONE [Concomitant]
     Dosage: 25 mg, UNK
     Dates: start: 200809
  12. MCP [Concomitant]
     Dosage: 36 UNK, UNK
     Dates: start: 20100330

REACTIONS (1)
  - Gastrointestinal haemorrhage [Recovered/Resolved]
